FAERS Safety Report 7073597-3 (Version None)
Quarter: 2010Q4

REPORT INFORMATION
  Report Type: 
  Country: None (occurrence: None)
  Receive Date: 20101029
  Receipt Date: 20101021
  Transmission Date: 20110411
  Serious: Yes (Other)
  Sender: FDA-Public Use
  Company Number: GB-GENZYME-THYM-1001986

PATIENT
  Sex: Female

DRUGS (1)
  1. THYMOGLOBULIN [Suspect]
     Indication: KIDNEY TRANSPLANT REJECTION
     Dosage: UNK
     Route: 042

REACTIONS (2)
  - SKIN BURNING SENSATION [None]
  - URTICARIA [None]
